FAERS Safety Report 8222151-6 (Version None)
Quarter: 2012Q1

REPORT INFORMATION
  Report Type: 
  Country: None (occurrence: None)
  Receive Date: 20120320
  Receipt Date: 20120316
  Transmission Date: 20120608
  Serious: Yes (Life-Threatening)
  Sender: FDA-Public Use
  Company Number: US-JNJFOC-20120210231

PATIENT
  Sex: Female
  Weight: 73.94 kg

DRUGS (5)
  1. HYDROCHLOROTHIAZIDE [Concomitant]
  2. COLACE [Concomitant]
     Indication: ABNORMAL FAECES
  3. DIOVAN [Concomitant]
  4. CELEBREX [Concomitant]
     Indication: ANTIINFLAMMATORY THERAPY
  5. XARELTO [Suspect]
     Indication: KNEE OPERATION
     Route: 048

REACTIONS (1)
  - PULMONARY EMBOLISM [None]
